FAERS Safety Report 17346510 (Version 1)
Quarter: 2020Q1

REPORT INFORMATION
  Report Type: Spontaneous
  Country: US (occurrence: US)
  Receive Date: 20200114
  Receipt Date: 20200114
  Transmission Date: 20200409
  Serious: No
  Sender: FDA-Public Use
  Company Number: None

PATIENT

DRUGS (1)
  1. FLUOCINOLONE ACETONIDE OIL (AMNEAL) [Suspect]
     Active Substance: FLUOCINOLONE ACETONIDE
     Indication: ECZEMA
     Dosage: ?          QUANTITY:5 GTT DROP(S);?
     Route: 001
     Dates: start: 20191111, end: 20191211

REACTIONS (3)
  - Vertigo [None]
  - Dizziness [None]
  - Tinnitus [None]

NARRATIVE: CASE EVENT DATE: 20191112
